FAERS Safety Report 8073227-8 (Version None)
Quarter: 2012Q1

REPORT INFORMATION
  Report Type: 
  Country: None (occurrence: None)
  Receive Date: 20120126
  Receipt Date: 20120120
  Transmission Date: 20120608
  Serious: Yes (Other)
  Sender: FDA-Public Use
  Company Number: PHEH2012US001913

PATIENT
  Sex: Male

DRUGS (2)
  1. MENOPENIM [Concomitant]
  2. TOBI [Suspect]
     Indication: BRONCHIECTASIS
     Dosage: 300 MG/ 5 ML, UNK, BID

REACTIONS (1)
  - RENAL IMPAIRMENT [None]
